FAERS Safety Report 8024359-1 (Version None)
Quarter: 2012Q1

REPORT INFORMATION
  Report Type: 
  Country: None (occurrence: None)
  Receive Date: 20120105
  Receipt Date: 20120102
  Transmission Date: 20120608
  Serious: Yes (Other)
  Sender: FDA-Public Use
  Company Number: PHHY2012MX000635

PATIENT
  Age: 84 Year
  Sex: Female

DRUGS (4)
  1. DIOVAN HCT [Suspect]
     Indication: HYPERTENSION
     Dosage: 1 TABLET (160/12.5 MG) DAILY
     Dates: start: 20111205, end: 20111201
  2. NEBIVOLOL HCL [Concomitant]
     Dosage: 0.5 DF, UNK
     Dates: start: 20111201
  3. COPLAVIX [Concomitant]
     Dosage: 1 TABLET EVERY THREE DAYS
  4. DIOVAN HCT [Suspect]
     Dosage: HALF TABLET (16012.5 MG) DAILY
     Dates: start: 20111201

REACTIONS (5)
  - DYSPNOEA [None]
  - WRONG TECHNIQUE IN DRUG USAGE PROCESS [None]
  - ANGINA PECTORIS [None]
  - HYPOTENSION [None]
  - HEART RATE DECREASED [None]
